FAERS Safety Report 17786149 (Version 4)
Quarter: 2022Q3

REPORT INFORMATION
  Report Type: Spontaneous
  Country: FR (occurrence: FR)
  Receive Date: 20200513
  Receipt Date: 20220805
  Transmission Date: 20221027
  Serious: Yes (Life-Threatening, Other)
  Sender: FDA-Public Use
  Company Number: FR-AFSSAPS-AM20200543

PATIENT
  Age: 70 Year
  Sex: Male
  Weight: 150 kg

DRUGS (16)
  1. LERCANIDIPINE [Suspect]
     Active Substance: LERCANIDIPINE
     Indication: Hypertension
     Dosage: 20 MILLIGRAM, ONCE A DAY
     Route: 048
     Dates: end: 20200404
  2. PRAVASTATIN [Suspect]
     Active Substance: PRAVASTATIN
     Indication: Dyslipidaemia
     Dosage: UNK
     Route: 048
     Dates: end: 20200331
  3. MOXONIDINE [Suspect]
     Active Substance: MOXONIDINE
     Indication: Hypertension
     Dosage: UNK
     Route: 048
     Dates: end: 20200404
  4. URAPIDIL [Suspect]
     Active Substance: URAPIDIL
     Indication: Hypertension
     Dosage: UNK
     Route: 048
  5. CORDARONE [Suspect]
     Active Substance: AMIODARONE HYDROCHLORIDE
     Indication: Atrial fibrillation
     Dosage: 1000 MILLIGRAM, EVERY WEEK
     Route: 048
     Dates: end: 20200331
  6. FEBUXOSTAT [Suspect]
     Active Substance: FEBUXOSTAT
     Indication: Gout
     Dosage: 80 MILLIGRAM, ONCE A DAY
     Route: 048
  7. FEBUXOSTAT [Suspect]
     Active Substance: FEBUXOSTAT
     Dosage: 1 DOSAGE FORM, ONCE A DAY
     Route: 048
     Dates: start: 20200404
  8. CANDESARTAN [Suspect]
     Active Substance: CANDESARTAN
     Indication: Hypertension
     Dosage: 32 MILLIGRAM, ONCE A DAY
     Route: 048
  9. CANDESARTAN [Suspect]
     Active Substance: CANDESARTAN
     Dosage: 1 DOSAGE FORM, ONCE A DAY
     Route: 048
     Dates: end: 20200404
  10. ESIDREX [Suspect]
     Active Substance: HYDROCHLOROTHIAZIDE
     Indication: Hypertension
     Dosage: 12.5 MILLIGRAM, ONCE A DAY
     Route: 048
     Dates: end: 20200401
  11. ESIDREX [Suspect]
     Active Substance: HYDROCHLOROTHIAZIDE
     Dosage: 12.5 MILLIGRAM, ONCE A DAY
     Route: 048
     Dates: end: 20200404
  12. BISOPROLOL [Suspect]
     Active Substance: BISOPROLOL
     Indication: Hypertension
     Dosage: 10 MILLIGRAM, ONCE A DAY
     Route: 048
  13. BISOPROLOL [Suspect]
     Active Substance: BISOPROLOL
     Dosage: 1 DOSAGE FORM, ONCE A DAY
     Route: 048
     Dates: start: 20200401
  14. PANTOPRAZOLE [Concomitant]
     Active Substance: PANTOPRAZOLE
     Indication: Product used for unknown indication
     Dosage: UNK
     Route: 065
  15. Previscan [Concomitant]
     Indication: Product used for unknown indication
     Dosage: UNK
     Route: 065
  16. PHLOROGLUCINOL [Concomitant]
     Active Substance: PHLOROGLUCINOL
     Indication: Product used for unknown indication
     Dosage: UNK
     Route: 065

REACTIONS (3)
  - Electrocardiogram QT prolonged [Recovering/Resolving]
  - Bradycardia [Recovered/Resolved]
  - Hypotension [Recovered/Resolved]

NARRATIVE: CASE EVENT DATE: 20200331
